FAERS Safety Report 20245094 (Version 2)
Quarter: 2022Q1

REPORT INFORMATION
  Report Type: Spontaneous
  Country: None (occurrence: US)
  Receive Date: 20211229
  Receipt Date: 20220302
  Transmission Date: 20220424
  Serious: No
  Sender: FDA-Public Use
  Company Number: US-Y-mAbs Therapeutics-2123450

PATIENT
  Age: 6 Year
  Sex: Female
  Weight: 23.75 kg

DRUGS (11)
  1. DANYELZA [Suspect]
     Active Substance: NAXITAMAB-GQGK
     Indication: Neuroblastoma
     Route: 042
     Dates: start: 20211209
  2. KETAMINE HYDROCHLORIDE [Concomitant]
     Active Substance: KETAMINE HYDROCHLORIDE
  3. MORPHINE SULFATE [Concomitant]
     Active Substance: MORPHINE SULFATE
     Dates: start: 20211209
  4. CITRIC BUFFERED NORMAL SALINE [Concomitant]
     Active Substance: ANHYDROUS CITRIC ACID
     Dates: start: 20211213
  5. HYDROCORTISONE (HYDROCORTISONE ACETATE) [Concomitant]
     Active Substance: HYDROCORTISONE ACETATE
     Dates: start: 20211211
  6. BENADRYL [Concomitant]
     Active Substance: DIPHENHYDRAMINE HYDROCHLORIDE
     Dates: start: 20211213
  7. OXYCODONE. [Concomitant]
     Active Substance: OXYCODONE HYDROCHLORIDE
     Route: 048
     Dates: start: 20211209
  8. HYDROCORTISONE (HYDROCORTISONE ACETATE) [Concomitant]
     Active Substance: HYDROCORTISONE ACETATE
     Route: 042
  9. ACETAMINOPHEN [Concomitant]
     Active Substance: ACETAMINOPHEN
     Route: 048
  10. FAMOTIDINE [Concomitant]
     Active Substance: FAMOTIDINE
     Route: 048
  11. DIPHENHYDRAMINE [Concomitant]
     Active Substance: DIPHENHYDRAMINE
     Route: 042

REACTIONS (10)
  - Abdominal pain upper [Recovered/Resolved]
  - Chest pain [Recovered/Resolved with Sequelae]
  - Vomiting [Recovered/Resolved]
  - Dyspepsia [Recovered/Resolved]
  - Pain [Recovered/Resolved]
  - Urticaria [Recovered/Resolved]
  - Throat irritation [Recovered/Resolved]
  - Hypotension [Recovered/Resolved]
  - Pain [Recovered/Resolved]
  - Urticaria [Recovered/Resolved]

NARRATIVE: CASE EVENT DATE: 20211209
